FAERS Safety Report 12392514 (Version 7)
Quarter: 2017Q1

REPORT INFORMATION
  Report Type: Report from Study
  Country: BR (occurrence: BR)
  Receive Date: 20160523
  Receipt Date: 20170315
  Transmission Date: 20170428
  Serious: Yes (Other)
  Sender: FDA-Public Use
  Company Number: PHHY2014BR162994

PATIENT
  Age: 58 Year
  Sex: Female
  Weight: 76 kg

DRUGS (4)
  1. SANDOSTATIN LAR DEPOT [Suspect]
     Active Substance: OCTREOTIDE ACETATE
     Dosage: 1 DF (ONE INJECTION), EVERY 40 DAYS
     Route: 030
     Dates: start: 2015
  2. SANDOSTATIN LAR DEPOT [Suspect]
     Active Substance: OCTREOTIDE ACETATE
     Indication: ACROMEGALY
     Dosage: 20 MG, QMO
     Route: 030
     Dates: start: 2004
  3. SANDOSTATIN LAR DEPOT [Suspect]
     Active Substance: OCTREOTIDE ACETATE
     Dosage: 20 MG, EVERY SIX WEEKS
     Route: 030
  4. SANDOSTATIN LAR DEPOT [Suspect]
     Active Substance: OCTREOTIDE ACETATE
     Dosage: 20 MG, EVERY 40 DAYS
     Route: 030
     Dates: start: 2006

REACTIONS (28)
  - Eye pain [Not Recovered/Not Resolved]
  - Faeces soft [Recovering/Resolving]
  - Cholelithiasis [Not Recovered/Not Resolved]
  - Visual impairment [Not Recovered/Not Resolved]
  - Movement disorder [Unknown]
  - Chikungunya virus infection [Not Recovered/Not Resolved]
  - Inappropriate schedule of drug administration [Unknown]
  - Diabetes mellitus [Not Recovered/Not Resolved]
  - Memory impairment [Not Recovered/Not Resolved]
  - Peripheral swelling [Unknown]
  - Dysstasia [Unknown]
  - Bone pain [Not Recovered/Not Resolved]
  - Pain in extremity [Not Recovered/Not Resolved]
  - Pain [Not Recovered/Not Resolved]
  - Helplessness [Unknown]
  - Fatigue [Not Recovered/Not Resolved]
  - Fear [Unknown]
  - Gallbladder disorder [Unknown]
  - Faeces discoloured [Recovering/Resolving]
  - Abdominal pain [Recovering/Resolving]
  - Blood cholesterol increased [Recovering/Resolving]
  - Arthralgia [Not Recovered/Not Resolved]
  - Hypokinesia [Not Recovered/Not Resolved]
  - Headache [Unknown]
  - Abnormal faeces [Recovering/Resolving]
  - Concomitant disease aggravated [Not Recovered/Not Resolved]
  - Wrong technique in product usage process [Unknown]
  - Needle issue [Unknown]

NARRATIVE: CASE EVENT DATE: 2010
